FAERS Safety Report 7769799-0 (Version None)
Quarter: 2011Q3

REPORT INFORMATION
  Report Type: 
  Country: None (occurrence: None)
  Receive Date: 20110922
  Receipt Date: 20100826
  Transmission Date: 20111222
  Serious: No
  Sender: FDA-Public Use
  Company Number: US-ASTRAZENECA-2007UW21498

PATIENT
  Age: 15632 Day
  Sex: Male
  Weight: 111.1 kg

DRUGS (7)
  1. SEROQUEL [Suspect]
     Indication: DEPRESSION
     Dosage: 300-600 MG
     Route: 048
     Dates: start: 20051013, end: 20060829
  2. SEROQUEL [Suspect]
     Route: 048
     Dates: start: 20051110
  3. RISPERDAL [Concomitant]
     Indication: HALLUCINATION
     Dates: start: 20050922
  4. SEROQUEL [Suspect]
     Indication: ANXIETY
     Dosage: 300-600 MG
     Route: 048
     Dates: start: 20051013, end: 20060829
  5. SEROQUEL [Suspect]
     Route: 048
     Dates: start: 20051110
  6. SEROQUEL [Suspect]
     Indication: SCHIZOPHRENIA, PARANOID TYPE
     Dosage: 300-600 MG
     Route: 048
     Dates: start: 20051013, end: 20060829
  7. SEROQUEL [Suspect]
     Route: 048
     Dates: start: 20051110

REACTIONS (6)
  - ADVERSE DRUG REACTION [None]
  - BLOOD CHOLESTEROL INCREASED [None]
  - HYPERLIPIDAEMIA [None]
  - BLOOD TRIGLYCERIDES INCREASED [None]
  - TYPE 2 DIABETES MELLITUS [None]
  - DIABETIC COMPLICATION [None]
